FAERS Safety Report 15627013 (Version 2)
Quarter: 2019Q4

REPORT INFORMATION
  Report Type: Report from Study
  Country: US (occurrence: US)
  Receive Date: 20181116
  Receipt Date: 20191025
  Transmission Date: 20200122
  Serious: Yes (Death)
  Sender: FDA-Public Use
  Company Number: US-PFIZER INC-2018470454

PATIENT

DRUGS (7)
  1. PREDNISONE. [Suspect]
     Active Substance: PREDNISONE
     Indication: MANTLE CELL LYMPHOMA
     Dosage: 100 MG, CYCLIC (ORALLY DAYS 1-5,CYCLES 1, 3, 5)
     Route: 048
     Dates: start: 201504
  2. RITUXIMAB. [Suspect]
     Active Substance: RITUXIMAB
     Indication: MANTLE CELL LYMPHOMA
     Dosage: 375 MG/M2, CYCLIC (DAY 1,CYCLES 1,3,5)
     Dates: start: 201504
  3. CYTARABINE. [Suspect]
     Active Substance: CYTARABINE
     Indication: MANTLE CELL LYMPHOMA
     Dosage: CYCLIC (3 G/M2 X 4 DOSES EVERY 12 HOURS DAY 1 AND 2 (2 G/M2 FOR PATIENTS AGED 60 YEARS
     Dates: start: 201504
  4. BORTEZOMIB. [Suspect]
     Active Substance: BORTEZOMIB
     Indication: MANTLE CELL LYMPHOMA
     Dosage: 1.3 MG/M2, CYCLIC (DAYS 1 AND 8) (CYCLES 1, 3, 5)
     Route: 058
     Dates: start: 201504
  5. CYCLOPHOSPHAMIDE. [Suspect]
     Active Substance: CYCLOPHOSPHAMIDE
     Indication: MANTLE CELL LYMPHOMA
     Dosage: 750 MG/M2, CYCLIC (DAY 1,CYCLES 1, 3, 5)
     Dates: start: 201504
  6. RITUXIMAB. [Suspect]
     Active Substance: RITUXIMAB
     Dosage: 375 MG/M2, CYCLIC (DAY 1, CYCLES 2, 4, 6)
     Dates: start: 201504
  7. DOXORUBICIN HCL [Suspect]
     Active Substance: DOXORUBICIN HYDROCHLORIDE
     Indication: MANTLE CELL LYMPHOMA
     Dosage: 50 MG/M2, CYCLIC (DAY 1,CYCLES 1, 3, 5)
     Dates: start: 201504

REACTIONS (1)
  - Cardiac failure [Fatal]
